FAERS Safety Report 8781566 (Version 1)
Quarter: 2012Q4

REPORT INFORMATION
  Report Type: 
  Country: US (occurrence: US)
  Receive Date: 20120913
  Receipt Date: 20120913
  Transmission Date: 20130627
  Serious: No
  Sender: FDA-Public Use
  Company Number: US-009507513-1209USA003662

PATIENT

DRUGS (1)
  1. SINGULAIR [Suspect]
     Indication: RHINITIS ALLERGIC
     Dosage: 4 mg, Once
     Route: 048
     Dates: start: 20120531, end: 20120904

REACTIONS (2)
  - Restlessness [Recovering/Resolving]
  - Nightmare [Recovering/Resolving]
